FAERS Safety Report 18215223 (Version 4)
Quarter: 2021Q3

REPORT INFORMATION
  Report Type: Spontaneous
  Country: JP (occurrence: JP)
  Receive Date: 20200831
  Receipt Date: 20210720
  Transmission Date: 20211014
  Serious: Yes (Death, Hospitalization, Other)
  Sender: FDA-Public Use
  Company Number: JP-009507513-2005JPN002061J

PATIENT
  Age: 71 Year
  Sex: Male
  Weight: 48 kg

DRUGS (2)
  1. KEYTRUDA [Suspect]
     Active Substance: PEMBROLIZUMAB
     Indication: HEAD AND NECK CANCER STAGE IV
     Dosage: 200 MILLIGRAM, Q3W
     Route: 041
     Dates: start: 20200325, end: 20201111
  2. KEYTRUDA [Suspect]
     Active Substance: PEMBROLIZUMAB
     Dosage: 400 MILLIGRAM, EVERY 6 WEEKS
     Route: 041
     Dates: start: 20201202, end: 20210113

REACTIONS (4)
  - Secondary hypothyroidism [Recovered/Resolved with Sequelae]
  - Adrenocorticotropic hormone deficiency [Unknown]
  - Malignant neoplasm progression [Fatal]
  - Secondary adrenocortical insufficiency [Recovered/Resolved with Sequelae]

NARRATIVE: CASE EVENT DATE: 20200627
